FAERS Safety Report 7720154-9 (Version None)
Quarter: 2011Q3

REPORT INFORMATION
  Report Type: 
  Country: None (occurrence: None)
  Receive Date: 20110826
  Receipt Date: 20110826
  Transmission Date: 20111222
  Serious: Yes (Life-Threatening)
  Sender: FDA-Public Use
  Company Number: None

PATIENT
  Age: 51 Year
  Sex: Female
  Weight: 78.0187 kg

DRUGS (1)
  1. FENTANYL [Suspect]
     Indication: PAIN
     Dosage: 1 PATCH EVERY 72 HRS
     Dates: start: 20110802

REACTIONS (8)
  - CONFUSIONAL STATE [None]
  - THINKING ABNORMAL [None]
  - MEDICAL DEVICE COMPLICATION [None]
  - MALAISE [None]
  - OVERDOSE [None]
  - APPARENT DEATH [None]
  - VOMITING [None]
  - ACTIVITIES OF DAILY LIVING IMPAIRED [None]
